FAERS Safety Report 4292502-6 (Version None)
Quarter: 2004Q1

REPORT INFORMATION
  Report Type: 
  Country: None (occurrence: None)
  Receive Date: 20040126
  Receipt Date: 20030910
  Transmission Date: 20041129
  Serious: No
  Sender: FDA-Public Use
  Company Number: USA030946887

PATIENT
  Age: 77 Year
  Sex: Female
  Weight: 61 kg

DRUGS (11)
  1. FORTEO [Suspect]
     Indication: OSTEOPOROSIS
     Dates: start: 20030804
  2. EVISTA [Suspect]
  3. CLONAZEPAM [Concomitant]
  4. LOTENSIN [Concomitant]
  5. LESCOL [Concomitant]
  6. MULTIVATIMINS NOS (MULTIVITAMINS NOS) [Concomitant]
  7. CALCIUM MAGNESIUM [Concomitant]
  8. ASPIRIN [Concomitant]
  9. PREDNISONE [Concomitant]
  10. OMEGA 3 (FISH OIL) [Concomitant]
  11. BISOPROLOL [Concomitant]

REACTIONS (6)
  - ARTHRALGIA [None]
  - ASTHENIA [None]
  - BLOOD PRESSURE DECREASED [None]
  - HYPERTENSION [None]
  - INFLAMMATION [None]
  - POLYMYALGIA RHEUMATICA [None]
